FAERS Safety Report 9981745 (Version 2)
Quarter: 2014Q1

REPORT INFORMATION
  Report Type: Report from Study
  Country: US (occurrence: US)
  Receive Date: 20140307
  Receipt Date: 20140307
  Transmission Date: 20141002
  Serious: No
  Sender: FDA-Public Use
  Company Number: US-ABBVIE-13P-163-1173918-00

PATIENT
  Age: 58 Year
  Sex: Male

DRUGS (10)
  1. HUMIRA [Suspect]
     Indication: CROHN^S DISEASE
     Dates: start: 20131011
  2. METFORMIN ER [Concomitant]
     Indication: DIABETES MELLITUS
  3. METICORTEN [Concomitant]
     Indication: RHEUMATOID ARTHRITIS
  4. VASOTEC [Concomitant]
     Indication: BLOOD PRESSURE
  5. LIPITOR [Concomitant]
     Indication: BLOOD CHOLESTEROL
  6. SYNTHROID [Concomitant]
     Indication: THYROID DISORDER
  7. HYDROCORTISONE [Concomitant]
     Indication: THYROID DISORDER
     Dosage: ONE IN AM AND HALF IN AFTERNOON
  8. GLYBURIDE [Concomitant]
     Indication: DIABETES MELLITUS
  9. ENTOCORT [Concomitant]
     Indication: PRODUCT USED FOR UNKNOWN INDICATION
     Dosage: 2 PILLS ONE DAY AND 3 PILLS THE NEXT ALTERNATING
  10. ENTOCORT [Concomitant]
     Dosage: EVERY DAY

REACTIONS (5)
  - Rhinorrhoea [Not Recovered/Not Resolved]
  - Nasal discharge discolouration [Not Recovered/Not Resolved]
  - Paranasal sinus hypersecretion [Not Recovered/Not Resolved]
  - Tinnitus [Not Recovered/Not Resolved]
  - Hypersensitivity [Not Recovered/Not Resolved]
